FAERS Safety Report 8106632-1 (Version None)
Quarter: 2012Q1

REPORT INFORMATION
  Report Type: 
  Country: None (occurrence: None)
  Receive Date: 20120130
  Receipt Date: 20120117
  Transmission Date: 20120608
  Serious: Yes (Other)
  Sender: FDA-Public Use
  Company Number: DSA_48878_2012

PATIENT
  Age: 40 Year
  Sex: Female

DRUGS (6)
  1. TAMOXIFEN CITRATE [Concomitant]
  2. ENALAPRIL MALEATE [Suspect]
     Indication: PRODUCT USED FOR UNKNOWN INDICATION
     Dosage: (5 MG QD ORAL) (7.5 MG QD ORAL)
     Route: 048
     Dates: start: 20010101
  3. ATORVASTATIN [Concomitant]
  4. TRIPTORELIN [Concomitant]
  5. BISOPROLOL FUMARATE [Suspect]
     Indication: PRODUCT USED FOR UNKNOWN INDICATION
     Dosage: (2.5 MG QD ORAL)
     Route: 048
  6. ROSUVASTATIN [Concomitant]

REACTIONS (4)
  - CORONARY OSTIAL STENOSIS [None]
  - BREAST CANCER [None]
  - REFUSAL OF TREATMENT BY PATIENT [None]
  - DYSLIPIDAEMIA [None]
